FAERS Safety Report 11260900 (Version 1)
Quarter: 2015Q3

REPORT INFORMATION
  Report Type: Spontaneous
  Country: FR (occurrence: FR)
  Receive Date: 20150710
  Receipt Date: 20150710
  Transmission Date: 20151125
  Serious: Yes (Hospitalization, Other)
  Sender: FDA-Public Use
  Company Number: FR-ASTRAZENECA-2015SE66550

PATIENT
  Age: 24221 Day
  Sex: Male

DRUGS (3)
  1. INEXIUM [Suspect]
     Active Substance: ESOMEPRAZOLE
     Route: 048
     Dates: end: 201505
  2. AMIKLIN [Concomitant]
     Active Substance: AMIKACIN SULFATE
     Indication: MYCOBACTERIUM ABSCESSUS INFECTION
  3. AMIKLIN [Concomitant]
     Active Substance: AMIKACIN SULFATE
     Indication: ABSCESS

REACTIONS (6)
  - Hyponatraemia [Recovered/Resolved]
  - Lung infection pseudomonal [Unknown]
  - Mycobacterium abscessus infection [Unknown]
  - Lung abscess [Unknown]
  - Partial seizures [Unknown]
  - Inappropriate antidiuretic hormone secretion [Unknown]

NARRATIVE: CASE EVENT DATE: 20150507
